FAERS Safety Report 23101276 (Version 1)
Quarter: 2023Q4

REPORT INFORMATION
  Report Type: Spontaneous
  Country: CN (occurrence: CN)
  Receive Date: 20231024
  Receipt Date: 20231024
  Transmission Date: 20240110
  Serious: Yes (Hospitalization)
  Sender: FDA-Public Use
  Company Number: CN-PFIZER INC-PV202300174417

PATIENT
  Age: 83 Year
  Sex: Female

DRUGS (2)
  1. METHOTREXATE SODIUM [Suspect]
     Active Substance: METHOTREXATE SODIUM
     Indication: Peripheral T-cell lymphoma unspecified
     Dosage: 2G DAY 1 (1.8G+0.2G)
     Route: 041
     Dates: start: 20231009, end: 20231009
  2. THIOTEPA [Suspect]
     Active Substance: THIOTEPA
     Indication: Peripheral T-cell lymphoma unspecified
     Dosage: 40.000 MG, 1X/DAY
     Route: 041
     Dates: start: 20231010, end: 20231010

REACTIONS (4)
  - Acute kidney injury [Recovering/Resolving]
  - Headache [Recovering/Resolving]
  - Pyrexia [Recovered/Resolved]
  - Sleep disorder [Recovering/Resolving]

NARRATIVE: CASE EVENT DATE: 20231011
